FAERS Safety Report 17693405 (Version 1)
Quarter: 2020Q2

REPORT INFORMATION
  Report Type: Spontaneous
  Country: US (occurrence: US)
  Receive Date: 20200420
  Receipt Date: 20200420
  Transmission Date: 20200714
  Serious: Yes (Hospitalization)
  Sender: FDA-Public Use
  Company Number: None

PATIENT
  Age: 61 Year
  Sex: Male
  Weight: 92.4 kg

DRUGS (2)
  1. BENDAMUSTINE (BENDAMUSTINE HCL 25MG/ML INJ, VIL, 4ML) [Suspect]
     Active Substance: BENDAMUSTINE HYDROCHLORIDE
     Indication: CHRONIC LYMPHOCYTIC LEUKAEMIA
     Route: 042
     Dates: start: 20180329, end: 20180428
  2. BENDAMUSTINE (BENDAMUSTINE HCL 25MG/ML  INJ, VIL, 4ML) [Suspect]
     Active Substance: BENDAMUSTINE HYDROCHLORIDE
     Indication: SYSTEMIC INFECTION

REACTIONS (12)
  - Infection [None]
  - Neck pain [None]
  - Rash [None]
  - Dyspnoea [None]
  - Pharyngeal swelling [None]
  - Blood uric acid increased [None]
  - Tumour lysis syndrome [None]
  - Drug reaction with eosinophilia and systemic symptoms [None]
  - Abdominal pain [None]
  - Abdominal distension [None]
  - Pyrexia [None]
  - Oropharyngeal pain [None]

NARRATIVE: CASE EVENT DATE: 20180428
